FAERS Safety Report 10007798 (Version 2)
Quarter: 2014Q2

REPORT INFORMATION
  Report Type: Report from Study
  Country: NL (occurrence: NL)
  Receive Date: 20140313
  Receipt Date: 20140404
  Transmission Date: 20141212
  Serious: Yes (Hospitalization, Other)
  Sender: FDA-Public Use
  Company Number: PHHY2014NL030386

PATIENT
  Age: 78 Year
  Sex: Male

DRUGS (6)
  1. ZOMETA [Suspect]
     Indication: PROSTATE CANCER METASTATIC
     Dosage: 4 MG PER 100 ML, ONCE EVERY 4 WEEKS.
     Route: 042
  2. ZOMETA [Suspect]
     Dosage: 4 MG PER 100 ML, ONCE EVERY 4 WEEKS
     Route: 042
     Dates: start: 20111027
  3. ZOMETA [Suspect]
     Dosage: 4 MG PER 100 ML, ONCE EVERY 4 WEEKS
     Route: 042
     Dates: start: 20140210
  4. ANTIHYPERTENSIVES [Concomitant]
     Dosage: UNK UKN, UNK
  5. ANTIARRHYTHMIC AGENTS [Concomitant]
     Dosage: UNK UKN, UNK
  6. ANTIPSYCHOTICS [Concomitant]
     Dosage: UNK UKN, UNK

REACTIONS (5)
  - Myocardial infarction [Recovering/Resolving]
  - Atrial fibrillation [Unknown]
  - Chest discomfort [Unknown]
  - Dyspnoea [Unknown]
  - Asthenia [Recovered/Resolved with Sequelae]
